FAERS Safety Report 12724441 (Version 1)
Quarter: 2016Q3

REPORT INFORMATION
  Report Type: Spontaneous
  Country: US (occurrence: US)
  Receive Date: 20160908
  Receipt Date: 20160908
  Transmission Date: 20161109
  Serious: No
  Sender: FDA-Public Use
  Company Number: US-FERRINGPH-2016FE03327

PATIENT
  Age: 64 Year
  Sex: Female

DRUGS (1)
  1. PREPOPIK [Suspect]
     Active Substance: ANHYDROUS CITRIC ACID\MAGNESIUM OXIDE\SODIUM PICOSULFATE
     Indication: BOWEL PREPARATION
     Dosage: 2 SACHETS, UNK
     Route: 048

REACTIONS (7)
  - Vomiting [Unknown]
  - Hallucination, gustatory [Unknown]
  - Hallucination, olfactory [Unknown]
  - Chills [Unknown]
  - Retching [Unknown]
  - Dysgeusia [Unknown]
  - Nausea [Unknown]
